FAERS Safety Report 24896915 (Version 1)
Quarter: 2025Q1

REPORT INFORMATION
  Report Type: Spontaneous
  Country: CN (occurrence: CN)
  Receive Date: 20250128
  Receipt Date: 20250128
  Transmission Date: 20250409
  Serious: Yes (Disabling, Other)
  Sender: ABBVIE
  Company Number: CN-ABBVIE-6106111

PATIENT
  Age: 38 Year
  Sex: Male
  Weight: 57 kg

DRUGS (5)
  1. VENETOCLAX [Suspect]
     Active Substance: VENETOCLAX
     Indication: Leukaemia
     Route: 048
     Dates: start: 20241226, end: 20241226
  2. VENETOCLAX [Suspect]
     Active Substance: VENETOCLAX
     Indication: Leukaemia
     Route: 048
     Dates: start: 20241227, end: 20241227
  3. VENETOCLAX [Suspect]
     Active Substance: VENETOCLAX
     Indication: Leukaemia
     Route: 048
     Dates: start: 20241228, end: 20250123
  4. AZACITIDINE [Suspect]
     Active Substance: AZACITIDINE
     Indication: Acute myeloid leukaemia
     Route: 058
     Dates: start: 20241226, end: 20250102
  5. WATER [Concomitant]
     Active Substance: WATER
     Indication: Acute myeloid leukaemia
     Dosage: STERILE
     Route: 058
     Dates: start: 20241226, end: 20250102

REACTIONS (2)
  - Granulocyte count decreased [Recovered/Resolved]
  - White blood cell count decreased [Recovered/Resolved]

NARRATIVE: CASE EVENT DATE: 20250115
